FAERS Safety Report 5997987-2 (Version None)
Quarter: 2008Q4

REPORT INFORMATION
  Report Type: 
  Country: None (occurrence: None)
  Receive Date: 20081211
  Receipt Date: 20081201
  Transmission Date: 20090506
  Serious: Yes (Other)
  Sender: FDA-Public Use
  Company Number: 231422K08USA

PATIENT
  Age: 98 Year
  Sex: Female
  Weight: 50 kg

DRUGS (3)
  1. REBIF [Suspect]
     Indication: MULTIPLE SCLEROSIS
     Dosage: 22 MCG, 3 IN 1 WEEKS, SUBCUTANEOUS
     Route: 058
     Dates: start: 20070822
  2. ORAL CONTRACEPTIVE(ORAL CONTRACEPTIVE NOS) [Concomitant]
  3. MULTIVITAMIN(MULTIVITAMIN) [Concomitant]

REACTIONS (6)
  - GINGIVAL RECESSION [None]
  - HYPERSENSITIVITY [None]
  - IMPAIRED HEALING [None]
  - PAIN [None]
  - TOOTH DISORDER [None]
  - TRANSPLANT [None]
